FAERS Safety Report 12338438 (Version 1)
Quarter: 2016Q2

REPORT INFORMATION
  Report Type: Spontaneous
  Country: US (occurrence: US)
  Receive Date: 20160505
  Receipt Date: 20160505
  Transmission Date: 20160815
  Serious: No
  Sender: FDA-Public Use
  Company Number: US-ELI_LILLY_AND_COMPANY-US201604005024

PATIENT
  Age: 65 Year
  Sex: Male

DRUGS (5)
  1. HUMULIN N [Suspect]
     Active Substance: INSULIN HUMAN
     Dosage: 19 U, QD
     Route: 065
     Dates: start: 201512
  2. HUMULIN N [Suspect]
     Active Substance: INSULIN HUMAN
     Dosage: 19 U, QD
     Route: 065
  3. HUMULIN N [Suspect]
     Active Substance: INSULIN HUMAN
     Indication: TYPE 2 DIABETES MELLITUS
     Dosage: 10 U, EACH MORNING
     Route: 065
     Dates: start: 201512
  4. HUMULIN N [Suspect]
     Active Substance: INSULIN HUMAN
     Dosage: 10 U, EACH MORNING
     Route: 065
  5. METFORMIN [Concomitant]
     Active Substance: METFORMIN HYDROCHLORIDE
     Indication: DIABETES MELLITUS
     Dosage: UNK, BID
     Route: 065
     Dates: start: 1986

REACTIONS (5)
  - Tremor [Unknown]
  - Visual impairment [Unknown]
  - Blood glucose fluctuation [Recovered/Resolved]
  - Hypoacusis [Unknown]
  - Hyperhidrosis [Unknown]

NARRATIVE: CASE EVENT DATE: 20160411
